FAERS Safety Report 7163048-2 (Version None)
Quarter: 2010Q4

REPORT INFORMATION
  Report Type: 
  Country: None (occurrence: None)
  Receive Date: 20101215
  Receipt Date: 20100216
  Transmission Date: 20110411
  Serious: Yes (Other)
  Sender: FDA-Public Use
  Company Number: US-PFIZER INC-2009262421

PATIENT
  Sex: Female

DRUGS (5)
  1. LYRICA [Suspect]
     Indication: FIBROMYALGIA
     Dosage: 100 MG, 3X/DAY
     Route: 048
     Dates: start: 20080101
  2. ELMIRON [Concomitant]
  3. ZANAFLEX [Concomitant]
  4. ZOLOFT [Concomitant]
  5. PRAVASTATIN [Concomitant]

REACTIONS (2)
  - HYPERTENSION [None]
  - VISUAL IMPAIRMENT [None]
